FAERS Safety Report 11794142 (Version 2)
Quarter: 2016Q4

REPORT INFORMATION
  Report Type: Spontaneous
  Country: TW (occurrence: TW)
  Receive Date: 20151202
  Receipt Date: 20161212
  Transmission Date: 20170206
  Serious: Yes (Other)
  Sender: FDA-Public Use
  Company Number: TW-HQ SPECIALTY-TW-2015INT000663

PATIENT

DRUGS (3)
  1. VINBLASTINE [Suspect]
     Active Substance: VINBLASTINE
     Indication: GERM CELL NEOPLASM
     Dosage: 6 MG/M2, ON DAY 2
  2. CISPLATIN. [Suspect]
     Active Substance: CISPLATIN
     Indication: GERM CELL NEOPLASM
     Dosage: 90 MG/M2, ON DAY 3
  3. BLEOMYCIN [Suspect]
     Active Substance: BLEOMYCIN SULFATE
     Indication: GERM CELL NEOPLASM
     Dosage: 15 MG/M2 DAILY, ON DAYS 1-3

REACTIONS (2)
  - Renal impairment [Unknown]
  - Inappropriate antidiuretic hormone secretion [Unknown]
